FAERS Safety Report 5010815-7 (Version None)
Quarter: 2006Q2

REPORT INFORMATION
  Report Type: 
  Country: None (occurrence: None)
  Receive Date: 20060523
  Receipt Date: 20060510
  Transmission Date: 20061013
  Serious: Yes (Hospitalization, Other)
  Sender: FDA-Public Use
  Company Number: 2006064144

PATIENT
  Sex: Female

DRUGS (1)
  1. DAYPRO [Suspect]
     Indication: OSTEOARTHRITIS

REACTIONS (7)
  - ANAEMIA [None]
  - BLOOD COUNT ABNORMAL [None]
  - DIABETES MELLITUS [None]
  - FATIGUE [None]
  - GASTROINTESTINAL DISORDER [None]
  - HYPOTENSION [None]
  - OESOPHAGEAL DISORDER [None]
